FAERS Safety Report 12212741 (Version 1)
Quarter: 2016Q1

REPORT INFORMATION
  Report Type: Spontaneous
  Country: US (occurrence: US)
  Receive Date: 20160328
  Receipt Date: 20160328
  Transmission Date: 20160526
  Serious: No
  Sender: FDA-Public Use
  Company Number: US-STRIDES ARCOLAB LIMITED-2015SP002636

PATIENT

DRUGS (5)
  1. PHOSPHORUS [Concomitant]
     Active Substance: PHOSPHORUS
     Indication: LOW TURNOVER OSTEOPATHY
     Dosage: UNK
  2. CALCIUM [Concomitant]
     Active Substance: CALCIUM
     Indication: LOW TURNOVER OSTEOPATHY
     Dosage: UNK
  3. VITAMIN D                          /00107901/ [Concomitant]
     Active Substance: ERGOCALCIFEROL
     Indication: LOW TURNOVER OSTEOPATHY
     Dosage: UNK
  4. CALCITRIOL. [Suspect]
     Active Substance: CALCITRIOL
     Indication: LOW TURNOVER OSTEOPATHY
     Dosage: UNK
  5. CALCITRIOL. [Suspect]
     Active Substance: CALCITRIOL
     Indication: HYPERPARATHYROIDISM SECONDARY

REACTIONS (2)
  - Hypercalcaemia [Unknown]
  - Hypercalciuria [Unknown]
